FAERS Safety Report 21704658 (Version 1)
Quarter: 2022Q4

REPORT INFORMATION
  Report Type: Spontaneous
  Country: US (occurrence: US)
  Receive Date: 20221209
  Receipt Date: 20221209
  Transmission Date: 20230113
  Serious: No
  Sender: FDA-Public Use
  Company Number: US-drreddys-SPO/USA/22/0157666

PATIENT

DRUGS (1)
  1. FONDAPARINUX SODIUM [Suspect]
     Active Substance: FONDAPARINUX SODIUM
     Indication: Product used for unknown indication

REACTIONS (3)
  - Injection site pain [Unknown]
  - Needle issue [Unknown]
  - Product quality issue [Unknown]
